FAERS Safety Report 25573773 (Version 4)
Quarter: 2025Q4

REPORT INFORMATION
  Report Type: Spontaneous
  Country: JP (occurrence: JP)
  Receive Date: 20250717
  Receipt Date: 20251031
  Transmission Date: 20260117
  Serious: Yes (Hospitalization)
  Sender: MERCK SHARP & DOHME LLC
  Company Number: JP-009507513-2308344

PATIENT
  Age: 7 Decade
  Sex: Female

DRUGS (6)
  1. KEYTRUDA [Suspect]
     Active Substance: PEMBROLIZUMAB
     Indication: Microsatellite instability cancer
     Dosage: STRENGTH 100 MG
     Route: 013
     Dates: start: 20240119, end: 20250324
  2. KEYTRUDA [Suspect]
     Active Substance: PEMBROLIZUMAB
     Indication: Microsatellite instability cancer
     Dosage: STRENGTH 100 MG
     Route: 013
     Dates: start: 20250414
  3. OLMESARTAN [Concomitant]
     Active Substance: OLMESARTAN
     Route: 065
  4. XARELTO [Concomitant]
     Active Substance: RIVAROXABAN
     Route: 065
     Dates: start: 202110
  5. LENVIMA [Suspect]
     Active Substance: LENVATINIB
     Indication: Microsatellite instability cancer
     Route: 048
     Dates: start: 20240119, end: 2025
  6. LENVIMA [Suspect]
     Active Substance: LENVATINIB
     Indication: Microsatellite instability cancer
     Dosage: 5 DAYS ON, 2 DAYS OFF
     Route: 048
     Dates: start: 20250603, end: 20250614

REACTIONS (2)
  - Fistula of small intestine [Recovered/Resolved]
  - Incorrect route of product administration [Unknown]

NARRATIVE: CASE EVENT DATE: 20240119
